FAERS Safety Report 4726328-3 (Version None)
Quarter: 2005Q3

REPORT INFORMATION
  Report Type: 
  Country: None (occurrence: None)
  Receive Date: 20050725
  Receipt Date: 20050711
  Transmission Date: 20060218
  Serious: Yes (Life-Threatening, Disabling, Other)
  Sender: FDA-Public Use
  Company Number: 2005103144

PATIENT
  Sex: Female

DRUGS (2)
  1. CELEBREX [Suspect]
     Indication: ARTHRITIS
     Dosage: 200 MG (200 MG, 1 IN 1 D)
     Dates: end: 20031101
  2. LEXAPRO [Concomitant]

REACTIONS (6)
  - FALL [None]
  - IMMOBILE [None]
  - JOINT INJURY [None]
  - MYOCARDIAL INFARCTION [None]
  - SKELETAL INJURY [None]
  - WEIGHT INCREASED [None]
